FAERS Safety Report 20249349 (Version 1)
Quarter: 2021Q4

REPORT INFORMATION
  Report Type: Spontaneous
  Country: CN (occurrence: CN)
  Receive Date: 20211229
  Receipt Date: 20211229
  Transmission Date: 20220303
  Serious: Yes (Hospitalization)
  Sender: FDA-Public Use
  Company Number: CN-NOVARTISPH-NVSC2021CN296211

PATIENT
  Age: 28 Year
  Sex: Female

DRUGS (6)
  1. CYCLOSPORINE [Suspect]
     Active Substance: CYCLOSPORINE
     Indication: Tocolysis
     Dosage: 50 MG, BID
     Route: 048
     Dates: start: 20210910
  2. CYCLOSPORINE [Suspect]
     Active Substance: CYCLOSPORINE
     Dosage: 50 MG, BID
     Route: 048
     Dates: start: 20211101
  3. DYDROGESTERONE [Suspect]
     Active Substance: DYDROGESTERONE
     Indication: Tocolysis
     Dosage: 10 MG, BID
     Route: 048
     Dates: start: 20210902
  4. DYDROGESTERONE [Suspect]
     Active Substance: DYDROGESTERONE
     Dosage: 10 MG, BID
     Route: 048
     Dates: start: 20211101
  5. HYDROXYCHLOROQUINE SULFATE [Suspect]
     Active Substance: HYDROXYCHLOROQUINE SULFATE
     Indication: Tocolysis
     Dosage: 0.2 G, QD
     Route: 048
     Dates: start: 20210902
  6. HYDROXYCHLOROQUINE SULFATE [Suspect]
     Active Substance: HYDROXYCHLOROQUINE SULFATE
     Dosage: 0.2 G, QD
     Route: 048
     Dates: start: 20211101

REACTIONS (1)
  - Transaminases increased [Recovered/Resolved]

NARRATIVE: CASE EVENT DATE: 20211015
